FAERS Safety Report 18488056 (Version 1)
Quarter: 2020Q4

REPORT INFORMATION
  Report Type: Spontaneous
  Country: US (occurrence: US)
  Receive Date: 20201110
  Receipt Date: 20201110
  Transmission Date: 20210114
  Serious: No
  Sender: FDA-Public Use
  Company Number: US-FOUNDATIONCONSUMERHC-2020-US-019197

PATIENT
  Age: 23 Year
  Sex: Female
  Weight: 53.52 kg

DRUGS (2)
  1. TAKE ACTION [Suspect]
     Active Substance: LEVONORGESTREL
     Indication: POST COITAL CONTRACEPTION
     Dosage: 1.5MG PLAN B ONE STEP APR-2020 AND TAKE ACTION 21-SEP-2020
     Route: 048
     Dates: start: 202004, end: 20200921
  2. BIRTH CONTROL UNSPECIFIED [Concomitant]
     Route: 048

REACTIONS (2)
  - Vomiting [Recovered/Resolved]
  - Dysmenorrhoea [Recovered/Resolved]

NARRATIVE: CASE EVENT DATE: 202004
